FAERS Safety Report 4266218-6 (Version None)
Quarter: 2004Q1

REPORT INFORMATION
  Report Type: 
  Country: None (occurrence: None)
  Receive Date: 20040106
  Receipt Date: 20031229
  Transmission Date: 20041129
  Serious: No
  Sender: FDA-Public Use
  Company Number: 2003SE05866

PATIENT
  Age: 63 Year
  Sex: Male

DRUGS (7)
  1. NEXIUM [Suspect]
     Dosage: 40 MG DAILY PO
     Route: 048
     Dates: start: 20030910, end: 20031125
  2. ESKIM [Concomitant]
  3. SIVASTIN [Concomitant]
  4. UNIPRIL [Concomitant]
  5. CARDIOASPIRIN [Concomitant]
  6. VENITRIN [Concomitant]
  7. DIUREMID [Concomitant]

REACTIONS (1)
  - GYNAECOMASTIA [None]
